FAERS Safety Report 9701443 (Version 2)
Quarter: 2013Q4

REPORT INFORMATION
  Report Type: Spontaneous
  Country: US (occurrence: US)
  Receive Date: 20131121
  Receipt Date: 20131121
  Transmission Date: 20140711
  Serious: No
  Sender: FDA-Public Use
  Company Number: US-GILEAD-2008-0016499

PATIENT
  Age: 70 Year
  Sex: Female
  Weight: 134.72 kg

DRUGS (9)
  1. LETAIRIS [Suspect]
     Indication: PULMONARY ARTERIAL HYPERTENSION
     Route: 048
     Dates: start: 20080322, end: 20080409
  2. REVATIO [Concomitant]
  3. CATAPRES-TTS [Concomitant]
  4. AMLODIPINE [Concomitant]
  5. SPIRIVA [Concomitant]
     Route: 055
  6. LANTUS [Concomitant]
  7. HUMALOG [Concomitant]
  8. LEVOTHROID [Concomitant]
  9. KLOR-CON M20 [Concomitant]
     Route: 048

REACTIONS (2)
  - Diarrhoea [None]
  - Dyspnoea [None]
